FAERS Safety Report 5160299-3 (Version None)
Quarter: 2006Q4

REPORT INFORMATION
  Report Type: 
  Country: None (occurrence: None)
  Receive Date: 20061129
  Receipt Date: 20061122
  Transmission Date: 20070319
  Serious: Yes (Hospitalization)
  Sender: FDA-Public Use
  Company Number: CZ-GLAXOSMITHKLINE-B0448485A

PATIENT
  Age: 66 Year
  Sex: Male

DRUGS (2)
  1. AUGMENTIN '125' [Suspect]
     Indication: INFLAMMATION
     Dosage: 1G TWICE PER DAY
     Route: 048
     Dates: start: 20060921, end: 20060922
  2. EUPHYLLIN [Concomitant]

REACTIONS (5)
  - DERMATITIS ALLERGIC [None]
  - PRURITUS [None]
  - PURPURA [None]
  - SWELLING [None]
  - TOXIC SKIN ERUPTION [None]
